FAERS Safety Report 8988618 (Version 1)
Quarter: 2012Q4

REPORT INFORMATION
  Report Type: Spontaneous
  Country: FR (occurrence: None)
  Receive Date: 20121219
  Receipt Date: 20121219
  Transmission Date: 20130627
  Serious: Yes (Hospitalization)
  Sender: FDA-Public Use
  Company Number: FR-20120311

PATIENT
  Age: 87 Year
  Sex: Male

DRUGS (10)
  1. LIPIODOL (ETHIODIZED OIL) UNKNOWN [Suspect]
     Indication: CHEMOEMBOLISATION
     Route: 013
     Dates: start: 20121017, end: 20121017
  2. ADRIBLASTINE [Suspect]
     Indication: CHEMOEMBOLISATION
     Route: 013
     Dates: start: 20121017, end: 20121017
  3. ALDACTONE(SOIRONOLACTONE)(SOIRONOLACTONE) [Concomitant]
  4. AMLOR(AMLODIPINE)(AMLODIPINE) [Concomitant]
  5. CRESTOR (ROSUVASTATINE)(ROSUVASTATINE) [Concomitant]
  6. DUPHALAC(LACTULOSE)(LACTULOSE) [Concomitant]
  7. INEXIUM [Concomitant]
  8. PARACETAMOL (PARACETAMOL) (PARACETAMOL) [Concomitant]
  9. SERESTA(OXAZEPAM)(OXAZEPAM) [Concomitant]
  10. VENLAFAXINE(VENLAFAXINE)(VENLAFAXINE) [Concomitant]

REACTIONS (7)
  - Hepatocellular injury [None]
  - Cholecystitis [None]
  - Wrong drug administered [None]
  - Off label use [None]
  - Oxygen saturation decreased [None]
  - Ischaemia [None]
  - Post procedural complication [None]
